FAERS Safety Report 25493829 (Version 1)
Quarter: 2025Q2

REPORT INFORMATION
  Report Type: Spontaneous
  Country: US (occurrence: US)
  Receive Date: 20250630
  Receipt Date: 20250630
  Transmission Date: 20250717
  Serious: Yes (Death, Life-Threatening, Hospitalization, Other)
  Sender: APNAR PHARMA
  Company Number: US-Apnar-000210

PATIENT
  Age: 21 Year
  Sex: Male

DRUGS (4)
  1. BUPROPION HYDROCHLORIDE [Suspect]
     Active Substance: BUPROPION HYDROCHLORIDE
     Route: 048
     Dates: start: 2023, end: 2023
  2. ACETAMINOPHEN [Suspect]
     Active Substance: ACETAMINOPHEN
     Route: 048
     Dates: start: 2023, end: 2023
  3. FLUOXETINE [Concomitant]
     Active Substance: FLUOXETINE HYDROCHLORIDE
     Route: 048
  4. OLANZAPINE [Concomitant]
     Active Substance: OLANZAPINE
     Route: 048

REACTIONS (14)
  - Multiple organ dysfunction syndrome [Fatal]
  - Pulmonary oedema [Unknown]
  - Pleural effusion [Unknown]
  - Generalised tonic-clonic seizure [Recovering/Resolving]
  - Thrombocytopenia [Unknown]
  - Intentional overdose [Unknown]
  - Unresponsive to stimuli [Unknown]
  - Sinus tachycardia [Unknown]
  - Electrocardiogram QT prolonged [Unknown]
  - Liver function test abnormal [Unknown]
  - Lactic acidosis [Unknown]
  - Cardiac failure congestive [Unknown]
  - Renal failure [Unknown]
  - Vomiting [Unknown]

NARRATIVE: CASE EVENT DATE: 20230101
